FAERS Safety Report 9715570 (Version 1)
Quarter: 2013Q4

REPORT INFORMATION
  Report Type: Spontaneous
  Country: US (occurrence: US)
  Receive Date: 20131127
  Receipt Date: 20131127
  Transmission Date: 20140711
  Serious: No
  Sender: FDA-Public Use
  Company Number: US-BIOGENIDEC-2013BI113293

PATIENT
  Sex: Female

DRUGS (9)
  1. AVONEX [Suspect]
     Indication: MULTIPLE SCLEROSIS
     Route: 030
     Dates: start: 20130213
  2. GABAPENTIN [Concomitant]
  3. HYDROCHLOROTHIAZIDE [Concomitant]
  4. LEVOTHYROXINE [Concomitant]
  5. LISINOPRIL [Concomitant]
  6. MAGNESIUM CARBONATE [Concomitant]
  7. MONTELUKAST SODIUM [Concomitant]
  8. MOTRIN IB [Concomitant]
  9. VERAMYST [Concomitant]

REACTIONS (2)
  - Irritability [Unknown]
  - Dizziness [Unknown]
